FAERS Safety Report 7930147-4 (Version None)
Quarter: 2011Q4

REPORT INFORMATION
  Report Type: 
  Country: None (occurrence: None)
  Receive Date: 20111117
  Receipt Date: 20111102
  Transmission Date: 20120403
  Serious: Yes (Hospitalization, Other)
  Sender: FDA-Public Use
  Company Number: 2011MA015998

PATIENT
  Age: 72 Year
  Sex: Female

DRUGS (2)
  1. HYDROCHLOROTHIAZIDE [Suspect]
     Dosage: ;UNK;UNK
  2. AMILORIDE HYDROCHLORIDE [Suspect]

REACTIONS (3)
  - HYPOVOLAEMIA [None]
  - HYPONATRAEMIA [None]
  - FALL [None]
